FAERS Safety Report 20390288 (Version 3)
Quarter: 2023Q4

REPORT INFORMATION
  Report Type: Spontaneous
  Country: JP (occurrence: JP)
  Receive Date: 20220128
  Receipt Date: 20231025
  Transmission Date: 20240110
  Serious: Yes (Death, Other)
  Sender: FDA-Public Use
  Company Number: JP-AMGEN-JPNSP2021178081

PATIENT
  Age: 57 Year
  Sex: Male
  Weight: 66 kg

DRUGS (13)
  1. BLINCYTO [Suspect]
     Active Substance: BLINATUMOMAB
     Indication: B precursor type acute leukaemia
     Dosage: 28 MICROGRAM, QD, DRIP INFUSION
     Route: 041
     Dates: start: 20211014, end: 20211110
  2. BLINCYTO [Suspect]
     Active Substance: BLINATUMOMAB
     Indication: Acute lymphocytic leukaemia
  3. BLINCYTO [Suspect]
     Active Substance: BLINATUMOMAB
     Indication: Philadelphia positive acute lymphocytic leukaemia
  4. BESPONSA [Suspect]
     Active Substance: INOTUZUMAB OZOGAMICIN
     Indication: B precursor type acute leukaemia
     Dosage: CYCLE 1
     Route: 065
     Dates: start: 20210824, end: 20210916
  5. BESPONSA [Suspect]
     Active Substance: INOTUZUMAB OZOGAMICIN
     Indication: Philadelphia positive acute lymphocytic leukaemia
     Dosage: CYCLE 2
     Route: 065
     Dates: start: 20210916
  6. ITRACONAZOLE [Concomitant]
     Active Substance: ITRACONAZOLE
     Indication: Infection prophylaxis
     Dosage: 200 MILLIGRAM, QD
     Dates: start: 20210826, end: 20211019
  7. SULFAMETHOXAZOLE\TRIMETHOPRIM [Concomitant]
     Active Substance: SULFAMETHOXAZOLE\TRIMETHOPRIM
     Indication: Infection prophylaxis
     Dosage: 1 TABLET, QD
     Dates: start: 20210627
  8. METHOTREXATE [Concomitant]
     Active Substance: METHOTREXATE
     Indication: Prophylaxis
     Dosage: 15 MILLIGRAM, QD
     Route: 029
     Dates: start: 20211030, end: 20211030
  9. PREDONINE [Concomitant]
     Active Substance: PREDNISOLONE
     Indication: Prophylaxis
     Dosage: 20 MILLIGRAM, QD
     Route: 029
     Dates: start: 20211030, end: 20211030
  10. LANSOPRAZOLE [Concomitant]
     Active Substance: LANSOPRAZOLE
     Indication: Prophylaxis
     Dosage: 15 MILLIGRAM, QD
     Dates: start: 20210905, end: 20211029
  11. TRIBENOSIDE [Concomitant]
     Active Substance: TRIBENOSIDE
     Indication: Haemorrhoids
     Dosage: 200 MILLIGRAM, TID
     Dates: start: 20190816
  12. FLUDARABINE [Concomitant]
     Active Substance: FLUDARABINE PHOSPHATE
     Dosage: UNK
     Dates: start: 20211119
  13. MELPHALAN [Concomitant]
     Active Substance: MELPHALAN
     Dosage: UNK
     Dates: start: 20211119

REACTIONS (16)
  - Platelet count decreased [Unknown]
  - Arrhythmia [Fatal]
  - Blood alkaline phosphatase increased [Unknown]
  - Blood glucose increased [Unknown]
  - Amylase increased [Unknown]
  - Glycated albumin increased [Unknown]
  - Brain natriuretic peptide increased [Unknown]
  - Reticulocyte count increased [Unknown]
  - Protein urine present [Unknown]
  - Aspartate aminotransferase increased [Unknown]
  - Blood folate decreased [Unknown]
  - Blood lactate dehydrogenase increased [Unknown]
  - CD4 lymphocytes decreased [Unknown]
  - Blood urea increased [Unknown]
  - Blood immunoglobulin A decreased [Unknown]
  - White blood cell count decreased [Unknown]

NARRATIVE: CASE EVENT DATE: 20211015
